FAERS Safety Report 11729782 (Version 2)
Quarter: 2016Q1

REPORT INFORMATION
  Report Type: Spontaneous
  Country: US (occurrence: US)
  Receive Date: 20151112
  Receipt Date: 20160118
  Transmission Date: 20160525
  Serious: Yes (Hospitalization)
  Sender: FDA-Public Use
  Company Number: US-009507513-1511USA005456

PATIENT
  Age: 36 Year
  Sex: Male

DRUGS (1)
  1. INVANZ [Suspect]
     Active Substance: ERTAPENEM SODIUM
     Dosage: 1 G, UNK

REACTIONS (2)
  - Abdominal pain [Unknown]
  - Adverse event [Unknown]

NARRATIVE: CASE EVENT DATE: 20151022
